FAERS Safety Report 12971442 (Version 1)
Quarter: 2016Q4

REPORT INFORMATION
  Report Type: Spontaneous
  Country: US (occurrence: US)
  Receive Date: 20161123
  Receipt Date: 20161123
  Transmission Date: 20170207
  Serious: No
  Sender: FDA-Public Use
  Company Number: US-JAZZ-2016-US-020043

PATIENT
  Age: 59 Year
  Sex: Female
  Weight: 59.86 kg

DRUGS (34)
  1. CHLORHEXIDINE [Concomitant]
     Active Substance: CHLORHEXIDINE
  2. CLONAZEPAM. [Concomitant]
     Active Substance: CLONAZEPAM
  3. DUREZOL [Concomitant]
     Active Substance: DIFLUPREDNATE
  4. MELATONIN [Concomitant]
     Active Substance: MELATONIN
  5. PRAZOSIN [Concomitant]
     Active Substance: PRAZOSIN
  6. AMOXICILLIN. [Concomitant]
     Active Substance: AMOXICILLIN
  7. CALCIUM + VITAMIN D                /00944201/ [Concomitant]
     Active Substance: CALCIUM CARBONATE\CHOLECALCIFEROL
  8. CRESTOR [Concomitant]
     Active Substance: ROSUVASTATIN CALCIUM
  9. DOCUSATE SODIUM. [Concomitant]
     Active Substance: DOCUSATE SODIUM
  10. LAMICTAL [Concomitant]
     Active Substance: LAMOTRIGINE
  11. PREMARIN [Concomitant]
     Active Substance: ESTROGENS, CONJUGATED
  12. PROGESTERONE. [Concomitant]
     Active Substance: PROGESTERONE
  13. SONATA                             /00061001/ [Concomitant]
  14. VIVISCAL                           /02137601/ [Concomitant]
  15. ESTRADIOL. [Concomitant]
     Active Substance: ESTRADIOL
  16. XYREM [Suspect]
     Active Substance: SODIUM OXYBATE
     Indication: NARCOLEPSY
     Dosage: 2.25 G, BID
     Route: 048
     Dates: start: 20161007, end: 2016
  17. IBUPROFEN. [Concomitant]
     Active Substance: IBUPROFEN
  18. L-CARNITINE                        /00878601/ [Concomitant]
     Active Substance: LEVOCARNITINE
  19. LATISSE [Concomitant]
     Active Substance: BIMATOPROST
  20. NUVIGIL [Concomitant]
     Active Substance: ARMODAFINIL
  21. TROSPIUM CHLORIDE. [Concomitant]
     Active Substance: TROSPIUM CHLORIDE
  22. TYLENOL WITH CODEINE [Concomitant]
     Active Substance: ACETAMINOPHEN\CODEINE PHOSPHATE
  23. VITAMIN E                          /00110501/ [Concomitant]
     Active Substance: TOCOPHEROL
  24. ZINC GLUCONATE [Concomitant]
     Active Substance: ZINC GLUCONATE
  25. XYREM [Suspect]
     Active Substance: SODIUM OXYBATE
     Indication: CATAPLEXY
     Dosage: 3 G,BID
     Route: 048
     Dates: start: 2016, end: 20161016
  26. BIOTIN [Concomitant]
     Active Substance: BIOTIN
  27. LEVOTHYROXINE. [Concomitant]
     Active Substance: LEVOTHYROXINE
  28. VITAMIN D                          /00107901/ [Concomitant]
     Active Substance: ERGOCALCIFEROL
  29. METHYL FOLATE [Concomitant]
  30. SELENIUM [Concomitant]
     Active Substance: SELENIUM
  31. LACTULOSE. [Concomitant]
     Active Substance: LACTULOSE
  32. PILOCARPINE. [Concomitant]
     Active Substance: PILOCARPINE
  33. AMLODIPINE BESYLATE. [Concomitant]
     Active Substance: AMLODIPINE BESYLATE
  34. GEODON [Concomitant]
     Active Substance: ZIPRASIDONE HYDROCHLORIDE\ZIPRASIDONE MESYLATE

REACTIONS (4)
  - Anxiety [Unknown]
  - Dyspnoea [Unknown]
  - Hallucination, tactile [Recovered/Resolved]
  - Hallucination, auditory [Recovered/Resolved]

NARRATIVE: CASE EVENT DATE: 20161013
